FAERS Safety Report 10585798 (Version 1)
Quarter: 2014Q4

REPORT INFORMATION
  Report Type: Spontaneous
  Country: BR (occurrence: BR)
  Receive Date: 20141114
  Receipt Date: 20141114
  Transmission Date: 20150529
  Serious: Yes (Hospitalization)
  Sender: FDA-Public Use
  Company Number: BR-ELI_LILLY_AND_COMPANY-BR201411001788

PATIENT
  Age: 78 Year
  Sex: Female
  Weight: 70 kg

DRUGS (4)
  1. HUMULIN N [Suspect]
     Active Substance: INSULIN HUMAN
     Indication: DIABETES MELLITUS
     Dosage: 62 IU, EACH MORNING
     Route: 058
     Dates: start: 2005
  2. APIDRA [Concomitant]
     Active Substance: INSULIN GLULISINE
     Indication: PRODUCT USED FOR UNKNOWN INDICATION
     Dosage: UNK, UNKNOWN
     Route: 065
  3. HUMULIN N [Suspect]
     Active Substance: INSULIN HUMAN
     Dosage: 24 IU, EACH EVENING
     Route: 058
     Dates: start: 2005
  4. METFORMIN [Concomitant]
     Active Substance: METFORMIN HYDROCHLORIDE
     Indication: PRODUCT USED FOR UNKNOWN INDICATION
     Dosage: UNK, UNKNOWN
     Route: 065

REACTIONS (10)
  - Fall [Recovering/Resolving]
  - Tremor [Not Recovered/Not Resolved]
  - Rib fracture [Recovering/Resolving]
  - Injection site bruising [Not Recovered/Not Resolved]
  - Blood glucose increased [Unknown]
  - Incorrect dose administered [Not Recovered/Not Resolved]
  - Visual impairment [Not Recovered/Not Resolved]
  - Cold sweat [Not Recovered/Not Resolved]
  - Dehydration [Unknown]
  - Asthenia [Not Recovered/Not Resolved]

NARRATIVE: CASE EVENT DATE: 201406
